FAERS Safety Report 11816584 (Version 1)
Quarter: 2015Q4

REPORT INFORMATION
  Report Type: Spontaneous
  Country: GB (occurrence: GB)
  Receive Date: 20151210
  Receipt Date: 20151210
  Transmission Date: 20160305
  Serious: Yes (Other)
  Sender: FDA-Public Use
  Company Number: GB-ACCORD-036037

PATIENT
  Age: 83 Year
  Sex: Female
  Weight: 58 kg

DRUGS (9)
  1. CLOPIDOGREL [Suspect]
     Active Substance: CLOPIDOGREL BISULFATE
     Indication: PRODUCT USED FOR UNKNOWN INDICATION
     Route: 048
     Dates: end: 20150909
  2. LOSARTAN. [Concomitant]
     Active Substance: LOSARTAN
  3. THYROXINE [Concomitant]
     Active Substance: LEVOTHYROXINE
  4. RANITIDINE [Concomitant]
     Active Substance: RANITIDINE\RANITIDINE HYDROCHLORIDE
  5. SIMVASTATIN. [Concomitant]
     Active Substance: SIMVASTATIN
  6. LATANOPROST. [Concomitant]
     Active Substance: LATANOPROST
  7. LACTULOSE. [Concomitant]
     Active Substance: LACTULOSE
  8. GLICLAZIDE [Concomitant]
     Active Substance: GLICLAZIDE
  9. CITALOPRAM [Suspect]
     Active Substance: CITALOPRAM HYDROBROMIDE
     Indication: DEPRESSION
     Route: 048
     Dates: end: 20150909

REACTIONS (3)
  - Haematemesis [Unknown]
  - Fall [Recovered/Resolved]
  - Gastrointestinal haemorrhage [Unknown]

NARRATIVE: CASE EVENT DATE: 20150909
